FAERS Safety Report 6415030-8 (Version None)
Quarter: 2009Q4

REPORT INFORMATION
  Report Type: 
  Country: None (occurrence: None)
  Receive Date: 20091026
  Receipt Date: 20090812
  Transmission Date: 20100525
  Serious: No
  Sender: FDA-Public Use
  Company Number: US-ABBOTT-09P-163-0591348-00

PATIENT
  Sex: Female
  Weight: 90.8 kg

DRUGS (1)
  1. LUPRON DEPOT [Suspect]
     Indication: ENDOMETRIOSIS
     Dates: start: 20081101, end: 20090301

REACTIONS (6)
  - ALOPECIA [None]
  - BREAST ENLARGEMENT [None]
  - HORMONE LEVEL ABNORMAL [None]
  - HOT FLUSH [None]
  - PAIN [None]
  - PERSONALITY CHANGE [None]
